FAERS Safety Report 22587257 (Version 3)
Quarter: 2023Q2

REPORT INFORMATION
  Report Type: Spontaneous
  Country: US (occurrence: US)
  Receive Date: 20230612
  Receipt Date: 20230626
  Transmission Date: 20230722
  Serious: No
  Sender: FDA-Public Use
  Company Number: US-UNITED THERAPEUTICS-UNT-2023-016027

PATIENT
  Sex: Female
  Weight: 73.016 kg

DRUGS (5)
  1. REMODULIN [Suspect]
     Active Substance: TREPROSTINIL
     Indication: Pulmonary arterial hypertension
     Dosage: 0.03725 ?G/KG (SELF-FILLED 2.9 ML/CASSETTE; AT INFUSION RATE 33 MCL/HOUR),CONTINUING
     Route: 058
     Dates: start: 2023
  2. REMODULIN [Suspect]
     Active Substance: TREPROSTINIL
     Dosage: 0.03612 ?G/KG (SELF-FILLED WITH 2.9 ML/CASSETTE; AT PUMP RATE 32 MCL/HOUR), CONTINUING
     Route: 058
     Dates: start: 2023
  3. REMODULIN [Suspect]
     Active Substance: TREPROSTINIL
     Dosage: UNK, CONTINUING
     Route: 058
     Dates: start: 20230224
  4. ADEMPAS [Suspect]
     Active Substance: RIOCIGUAT
     Indication: Product used for unknown indication
     Dosage: UNK
     Route: 065
  5. OPSUMIT [Concomitant]
     Active Substance: MACITENTAN
     Indication: Product used for unknown indication
     Dosage: UNK
     Route: 065

REACTIONS (17)
  - Infusion site pain [Recovering/Resolving]
  - Migraine [Recovering/Resolving]
  - Insomnia [Unknown]
  - Vomiting [Recovering/Resolving]
  - Dyspepsia [Recovering/Resolving]
  - Pain in jaw [Recovering/Resolving]
  - Nasal congestion [Unknown]
  - Dyspnoea exertional [Unknown]
  - Respiratory tract congestion [Unknown]
  - Photophobia [Unknown]
  - Device malfunction [Unknown]
  - Incorrect dose administered [Unknown]
  - Infusion site erythema [Recovering/Resolving]
  - Nausea [Recovering/Resolving]
  - Diarrhoea [Recovering/Resolving]
  - Drug titration error [Unknown]
  - Overdose [Unknown]

NARRATIVE: CASE EVENT DATE: 20230101
